FAERS Safety Report 14114634 (Version 7)
Quarter: 2018Q1

REPORT INFORMATION
  Report Type: Report from Study
  Country: US (occurrence: US)
  Receive Date: 20171023
  Receipt Date: 20180306
  Transmission Date: 20180508
  Serious: No
  Sender: FDA-Public Use
  Company Number: US-GILEAD-2017-0299890

PATIENT
  Age: 13 Year
  Sex: Female
  Weight: 57.55 kg

DRUGS (13)
  1. ASPIRIN                            /00002701/ [Concomitant]
     Active Substance: ASPIRIN
  2. UPTRAVI [Suspect]
     Active Substance: SELEXIPAG
     Dosage: 1400 UG, BID
     Route: 065
  3. OXYGEN. [Concomitant]
     Active Substance: OXYGEN
  4. AMBRISENTAN [Suspect]
     Active Substance: AMBRISENTAN
     Indication: PULMONARY ARTERIAL HYPERTENSION
     Dosage: 10 MG, QD
     Route: 048
     Dates: start: 20140521
  5. UPTRAVI [Suspect]
     Active Substance: SELEXIPAG
     Indication: PRODUCT USED FOR UNKNOWN INDICATION
     Dosage: 1000 UG, BID
     Route: 048
  6. LANSOPRAZOLE. [Concomitant]
     Active Substance: LANSOPRAZOLE
  7. ADCIRCA [Concomitant]
     Active Substance: TADALAFIL
  8. FLUTICASONE. [Concomitant]
     Active Substance: FLUTICASONE
  9. MULTIVITAMIN                       /00097801/ [Concomitant]
     Active Substance: VITAMINS
  10. RANITIDINE. [Concomitant]
     Active Substance: RANITIDINE
  11. ALBUTEROL                          /00139501/ [Concomitant]
     Active Substance: ALBUTEROL
  12. CETIRIZINE [Concomitant]
     Active Substance: CETIRIZINE HYDROCHLORIDE
  13. TADALAFIL [Concomitant]
     Active Substance: TADALAFIL

REACTIONS (7)
  - Body mass index decreased [Unknown]
  - Dizziness [Unknown]
  - Carbon dioxide decreased [Unknown]
  - Sleep disorder [Not Recovered/Not Resolved]
  - Vomiting [Recovered/Resolved]
  - Flushing [Unknown]
  - Off label use [Not Recovered/Not Resolved]

NARRATIVE: CASE EVENT DATE: 20140521
